FAERS Safety Report 8600962-2 (Version None)
Quarter: 2012Q3

REPORT INFORMATION
  Report Type: 
  Country: None (occurrence: None)
  Receive Date: 20120817
  Receipt Date: 20120807
  Transmission Date: 20120928
  Serious: Yes (Hospitalization, Other)
  Sender: FDA-Public Use
  Company Number: GB-SANOFI-AVENTIS-2010SA057138

PATIENT
  Age: 18 Year
  Sex: Male

DRUGS (10)
  1. LANTUS [Suspect]
     Dosage: DOSE:20 UNIT(S)
     Route: 065
  2. LANTUS [Suspect]
     Dosage: DOSE:20 UNIT(S)
     Route: 065
  3. LANSOPRAZOLE [Concomitant]
  4. NOVORAPID [Suspect]
     Dosage: DOSE:4 UNIT(S)
     Route: 065
  5. NOVORAPID [Suspect]
     Dosage: DOSE:600 UNIT(S)
     Route: 058
     Dates: start: 20100920
  6. NOVORAPID [Suspect]
     Dosage: DOSE:600 UNIT(S)
     Route: 058
     Dates: start: 20100920
  7. NOVORAPID [Suspect]
     Dosage: DOSE:4 UNIT(S)
     Route: 065
  8. LANTUS [Suspect]
     Dosage: DOSE:1200 UNIT(S)
     Route: 058
     Dates: start: 20100920
  9. TRAMADOL HCL [Concomitant]
  10. LANTUS [Suspect]
     Dosage: DOSE:1200 UNIT(S)
     Route: 058
     Dates: start: 20100920

REACTIONS (6)
  - INJECTION SITE REACTION [None]
  - HYPOGLYCAEMIA [None]
  - INTENTIONAL OVERDOSE [None]
  - SUICIDE ATTEMPT [None]
  - BLOOD POTASSIUM DECREASED [None]
  - TACHYCARDIA [None]
